FAERS Safety Report 9344134 (Version 2)
Quarter: 2013Q3

REPORT INFORMATION
  Report Type: Spontaneous
  Country: US (occurrence: US)
  Receive Date: 20130612
  Receipt Date: 20130703
  Transmission Date: 20140515
  Serious: Yes (Other)
  Sender: FDA-Public Use
  Company Number: US-FRI-1000045743

PATIENT
  Age: 63 Year
  Sex: Male
  Weight: 85.96 kg

DRUGS (3)
  1. VIIBRYD [Suspect]
     Indication: DEPRESSION
     Dosage: 10 MG
     Route: 048
     Dates: start: 20130211, end: 20130301
  2. VIIBRYD [Suspect]
     Indication: DEPRESSION
     Dosage: 5 MG
     Route: 048
  3. AMBIEN CR [Concomitant]
     Dosage: 12.5 MG

REACTIONS (4)
  - Loss of consciousness [Recovered/Resolved]
  - Dehydration [Recovered/Resolved]
  - Vomiting [Recovered/Resolved]
  - Diarrhoea [Unknown]
